FAERS Safety Report 14445240 (Version 5)
Quarter: 2019Q2

REPORT INFORMATION
  Report Type: Spontaneous
  Country: US (occurrence: US)
  Receive Date: 20180126
  Receipt Date: 20190524
  Transmission Date: 20190711
  Serious: No
  Sender: FDA-Public Use
  Company Number: US-PFIZER INC-2017530309

PATIENT
  Age: 13 Year
  Sex: Female

DRUGS (3)
  1. GENOTROPIN [Suspect]
     Active Substance: SOMATROPIN
     Dosage: 1.8 MG, DAILY
     Route: 058
  2. GENOTROPIN [Suspect]
     Active Substance: SOMATROPIN
     Dosage: 2.8 MG, 1X/DAY (EVERY NIGHT WITH GENOTROPIN PEN 12)
     Route: 058
     Dates: start: 2016, end: 20190429
  3. GENOTROPIN [Suspect]
     Active Substance: SOMATROPIN
     Indication: GROWTH FAILURE
     Dosage: 1.8 MG, DAILY
     Route: 058

REACTIONS (4)
  - Intentional device misuse [Unknown]
  - Product dose omission [Unknown]
  - Headache [Unknown]
  - Device breakage [Unknown]

NARRATIVE: CASE EVENT DATE: 20171202
